FAERS Safety Report 10926425 (Version 1)
Quarter: 2015Q1

REPORT INFORMATION
  Report Type: Report from Study
  Country: DE (occurrence: DE)
  Receive Date: 20150318
  Receipt Date: 20150318
  Transmission Date: 20150721
  Serious: No
  Sender: FDA-Public Use
  Company Number: PHHY2015DE031619

PATIENT
  Sex: Female
  Weight: 66 kg

DRUGS (9)
  1. AMN107 [Suspect]
     Active Substance: NILOTINIB
     Dosage: 150 MG, QD
     Route: 048
     Dates: start: 20140530, end: 20140606
  2. L-THYROXIN [Concomitant]
     Active Substance: LEVOTHYROXINE SODIUM
     Indication: PRODUCT USED FOR UNKNOWN INDICATION
     Route: 065
     Dates: start: 20000303
  3. AMN107 [Suspect]
     Active Substance: NILOTINIB
     Dosage: 600 MG, QD
     Route: 048
     Dates: start: 20140707
  4. ALLOPURINOL. [Concomitant]
     Active Substance: ALLOPURINOL
     Indication: PRODUCT USED FOR UNKNOWN INDICATION
     Route: 065
     Dates: start: 20000303
  5. AMN107 [Suspect]
     Active Substance: NILOTINIB
     Indication: CHRONIC MYELOID LEUKAEMIA
     Dosage: 600 MG, QD
     Route: 048
     Dates: start: 20140506
  6. AMN107 [Suspect]
     Active Substance: NILOTINIB
     Dosage: 600 MG, QD
     Route: 048
     Dates: start: 20140606
  7. BELOC-ZOC MITE [Concomitant]
     Active Substance: METOPROLOL SUCCINATE
     Indication: PRODUCT USED FOR UNKNOWN INDICATION
     Route: 065
     Dates: start: 20000303
  8. AMN107 [Suspect]
     Active Substance: NILOTINIB
     Dosage: 600 MG, QD
     Route: 048
     Dates: start: 20141118
  9. AMN107 [Suspect]
     Active Substance: NILOTINIB
     Dosage: 600 MG, QD
     Dates: start: 20140804

REACTIONS (1)
  - Arthralgia [Not Recovered/Not Resolved]

NARRATIVE: CASE EVENT DATE: 20150217
